FAERS Safety Report 12177767 (Version 1)
Quarter: 2016Q1

REPORT INFORMATION
  Report Type: Spontaneous
  Country: US (occurrence: None)
  Receive Date: 20160314
  Receipt Date: 20160314
  Transmission Date: 20160526
  Serious: No
  Sender: FDA-Public Use
  Company Number: None

PATIENT
  Age: 69 Year
  Sex: Male
  Weight: 119 kg

DRUGS (3)
  1. LENALIDOMIDE (CC-5013) [Concomitant]
     Active Substance: LENALIDOMIDE
     Dates: end: 20160228
  2. DEXAMETHASONE. [Suspect]
     Active Substance: DEXAMETHASONE
     Dates: end: 20160226
  3. VELCADE [Suspect]
     Active Substance: BORTEZOMIB
     Dates: end: 20160225

REACTIONS (1)
  - Unresponsive to stimuli [None]

NARRATIVE: CASE EVENT DATE: 20160301
